FAERS Safety Report 6614935-2 (Version None)
Quarter: 2010Q1

REPORT INFORMATION
  Report Type: 
  Country: None (occurrence: None)
  Receive Date: 20100305
  Receipt Date: 20100115
  Transmission Date: 20100710
  Serious: Yes (Hospitalization, Other)
  Sender: FDA-Public Use
  Company Number: JP-JNJFOC-20091101652

PATIENT
  Sex: Male

DRUGS (1)
  1. CRAVIT [Suspect]
     Indication: PNEUMONIA
     Route: 048
     Dates: start: 20090801

REACTIONS (2)
  - ABDOMINAL DISCOMFORT [None]
  - PNEUMONIA [None]
